FAERS Safety Report 4694784-5 (Version None)
Quarter: 2005Q2

REPORT INFORMATION
  Report Type: 
  Country: None (occurrence: None)
  Receive Date: 20050617
  Receipt Date: 20050605
  Transmission Date: 20051028
  Serious: Yes (Other)
  Sender: FDA-Public Use
  Company Number: 142290USA

PATIENT
  Age: 27 Year
  Sex: Female

DRUGS (1)
  1. MERCAPTOPURINE [Suspect]
     Indication: CROHN'S DISEASE

REACTIONS (1)
  - MELANOCYTIC NAEVUS [None]
